FAERS Safety Report 8822976 (Version 1)
Quarter: 2012Q4

REPORT INFORMATION
  Report Type: Report from Study
  Country: FR (occurrence: FR)
  Receive Date: 20121003
  Receipt Date: 20121003
  Transmission Date: 20130627
  Serious: Yes (Other)
  Sender: FDA-Public Use
  Company Number: FR-JNJFOC-20111007948

PATIENT
  Age: 42 Year
  Sex: Female
  Weight: 85 kg

DRUGS (2)
  1. USTEKINUMAB [Suspect]
     Route: 042
  2. USTEKINUMAB [Suspect]
     Indication: SARCOIDOSIS
     Route: 042
     Dates: start: 20101125, end: 20110505

REACTIONS (1)
  - Pneumonia [Not Recovered/Not Resolved]
